FAERS Safety Report 7501522-7 (Version None)
Quarter: 2011Q2

REPORT INFORMATION
  Report Type: 
  Country: None (occurrence: None)
  Receive Date: 20110524
  Receipt Date: 20110520
  Transmission Date: 20111010
  Serious: Yes (Death)
  Sender: FDA-Public Use
  Company Number: PHHO2011DE07544

PATIENT
  Sex: Female
  Weight: 50.5 kg

DRUGS (7)
  1. AMBRISENTAN [Concomitant]
  2. REVATIO [Concomitant]
  3. MARCUMAR [Concomitant]
  4. GLEEVEC [Suspect]
     Dosage: 400 MG, QD
     Route: 048
     Dates: start: 20110412
  5. DIAZEPAM [Suspect]
  6. RAMIPRIL [Concomitant]
  7. GLEEVEC [Suspect]
     Indication: PULMONARY ARTERIAL HYPERTENSION
     Dosage: 200 MG, QD
     Route: 048
     Dates: start: 20110330, end: 20110411

REACTIONS (12)
  - RESPIRATORY DEPRESSION [None]
  - CENTRAL NERVOUS SYSTEM STIMULATION [None]
  - CIRCULATORY COLLAPSE [None]
  - DEPENDENCE [None]
  - SUICIDAL IDEATION [None]
  - BRADYCARDIA [None]
  - BLOOD DISORDER [None]
  - JAUNDICE [None]
  - TOXICITY TO VARIOUS AGENTS [None]
  - CONVULSION [None]
  - HYPOTENSION [None]
  - SYNCOPE [None]
